APPROVED DRUG PRODUCT: VANCOMYCIN HYDROCHLORIDE
Active Ingredient: VANCOMYCIN HYDROCHLORIDE
Strength: EQ 1.75GM BASE/VIAL
Dosage Form/Route: POWDER;INTRAVENOUS
Application: N209481 | Product #005
Applicant: MYLAN LABORATORIES LTD
Approved: Jun 26, 2024 | RLD: Yes | RS: Yes | Type: RX